FAERS Safety Report 18422275 (Version 3)
Quarter: 2020Q4

REPORT INFORMATION
  Report Type: Spontaneous
  Country: US (occurrence: US)
  Receive Date: 20201023
  Receipt Date: 20201123
  Transmission Date: 20210114
  Serious: Yes (Other)
  Sender: FDA-Public Use
  Company Number: US-PFIZER INC-2020408952

PATIENT
  Age: 62 Year
  Sex: Male
  Weight: 101.4 kg

DRUGS (1)
  1. PROPOFOL. [Suspect]
     Active Substance: PROPOFOL
     Indication: ANAESTHESIA
     Dosage: 70MG, (IV PUSH TITRATED TO EFFECT)
     Route: 042
     Dates: end: 20201020

REACTIONS (3)
  - Drug ineffective [Recovered/Resolved]
  - Poor quality product administered [Unknown]
  - Product complaint [Unknown]

NARRATIVE: CASE EVENT DATE: 20201020
